FAERS Safety Report 6609218-0 (Version None)
Quarter: 2010Q1

REPORT INFORMATION
  Report Type: 
  Country: None (occurrence: None)
  Receive Date: 20100224
  Receipt Date: 20100218
  Transmission Date: 20100710
  Serious: Yes (Death)
  Sender: FDA-Public Use
  Company Number: 2010US000537

PATIENT
  Age: 49 Year
  Sex: Female

DRUGS (1)
  1. PROTOPIC [Suspect]
     Indication: DERMATITIS CONTACT
     Dosage: 0.1%, BID, TOPICAL
     Route: 061
     Dates: start: 20080813, end: 20100122

REACTIONS (1)
  - DEATH [None]
